FAERS Safety Report 19365962 (Version 1)
Quarter: 2021Q2

REPORT INFORMATION
  Report Type: Spontaneous
  Country: US (occurrence: US)
  Receive Date: 20210603
  Receipt Date: 20210603
  Transmission Date: 20210717
  Serious: Yes (Hospitalization)
  Sender: FDA-Public Use
  Company Number: None

PATIENT
  Age: 40 Year
  Sex: Male

DRUGS (2)
  1. JANUVIA [Suspect]
     Active Substance: SITAGLIPTIN PHOSPHATE
     Indication: HYPERGLYCAEMIA
     Route: 048
     Dates: start: 20210525, end: 20210527
  2. JANUVIA [Suspect]
     Active Substance: SITAGLIPTIN PHOSPHATE
     Indication: TYPE 2 DIABETES MELLITUS
     Route: 048
     Dates: start: 20210525, end: 20210527

REACTIONS (3)
  - Euglycaemic diabetic ketoacidosis [None]
  - Anorectal cellulitis [None]
  - Metabolic acidosis [None]

NARRATIVE: CASE EVENT DATE: 20210527
